FAERS Safety Report 16173840 (Version 2)
Quarter: 2019Q2

REPORT INFORMATION
  Report Type: Report from Study
  Country: US (occurrence: US)
  Receive Date: 20190409
  Receipt Date: 20190417
  Transmission Date: 20190711
  Serious: No
  Sender: FDA-Public Use
  Company Number: PHEH2019US013487

PATIENT
  Age: 78 Year
  Sex: Female

DRUGS (1)
  1. KISQALI [Suspect]
     Active Substance: RIBOCICLIB
     Indication: PRODUCT USED FOR UNKNOWN INDICATION
     Dosage: 600 MG, QD
     Route: 048
     Dates: start: 20190308

REACTIONS (6)
  - Rash generalised [Not Recovered/Not Resolved]
  - Rash pruritic [Not Recovered/Not Resolved]
  - Purpura [Not Recovered/Not Resolved]
  - Scratch [Not Recovered/Not Resolved]
  - Pruritus [Not Recovered/Not Resolved]
  - Rash erythematous [Not Recovered/Not Resolved]

NARRATIVE: CASE EVENT DATE: 20190316
